FAERS Safety Report 4953842-8 (Version None)
Quarter: 2006Q1

REPORT INFORMATION
  Report Type: 
  Country: None (occurrence: None)
  Receive Date: 20060321
  Receipt Date: 20060308
  Transmission Date: 20060701
  Serious: Yes (Death)
  Sender: FDA-Public Use
  Company Number: 2006-DE-01273GD

PATIENT
  Age: 2 Month
  Sex: Female

DRUGS (5)
  1. DEXTROMETHORPHAN HYDROBROMIDE [Suspect]
     Indication: NASOPHARYNGITIS
  2. ACETAMINOPHEN [Suspect]
     Indication: NASOPHARYNGITIS
  3. PSEUDOEPHEDRINE HCL [Suspect]
     Indication: NASOPHARYNGITIS
  4. EPHEDRINE SUL CAP [Suspect]
     Indication: NASOPHARYNGITIS
  5. CARBINOXAMINE MALEATE [Suspect]
     Indication: NASOPHARYNGITIS

REACTIONS (2)
  - DRUG TOXICITY [None]
  - LOSS OF CONSCIOUSNESS [None]
